FAERS Safety Report 9202536 (Version 1)
Quarter: 2013Q2

REPORT INFORMATION
  Report Type: Report from Study
  Country: US (occurrence: US)
  Receive Date: 20130401
  Receipt Date: 20130401
  Transmission Date: 20140414
  Serious: Yes (Other)
  Sender: FDA-Public Use
  Company Number: US-GILEAD-2013-0072674

PATIENT
  Sex: Male

DRUGS (3)
  1. ELVITEGRAVIR/EMTRICITABINE/TENOFOVIR DF/COBICISTAT [Suspect]
     Indication: HIV INFECTION
     Dosage: UNK
     Dates: start: 201211
  2. ATRIPLA [Concomitant]
     Dosage: UNK
     Dates: start: 201002
  3. COMPLERA [Concomitant]
     Dosage: UNK
     Dates: start: 2011

REACTIONS (1)
  - Foot fracture [Unknown]
